FAERS Safety Report 15538580 (Version 1)
Quarter: 2018Q4

REPORT INFORMATION
  Report Type: Spontaneous
  Country: US (occurrence: US)
  Receive Date: 20181022
  Receipt Date: 20181022
  Transmission Date: 20190205
  Serious: No
  Sender: FDA-Public Use
  Company Number: US-LEXICON PHARMACEUTICALS, INC-18-1606-01238

PATIENT
  Age: 47 Year
  Sex: Female

DRUGS (7)
  1. TELOTRISTAT ETHYL [Suspect]
     Active Substance: TELOTRISTAT ETHYL
     Indication: CARCINOID SYNDROME
     Route: 048
     Dates: start: 20180901, end: 2018
  2. BUPROPION. [Concomitant]
     Active Substance: BUPROPION
  3. LETROZOLE. [Concomitant]
     Active Substance: LETROZOLE
  4. ATIVAN [Concomitant]
     Active Substance: LORAZEPAM
  5. TOPAMAX [Concomitant]
     Active Substance: TOPIRAMATE
  6. SOMATULINE [Concomitant]
     Active Substance: LANREOTIDE ACETATE
  7. INHALER COMPANIONS [Concomitant]

REACTIONS (1)
  - Adverse drug reaction [Unknown]

NARRATIVE: CASE EVENT DATE: 201809
